FAERS Safety Report 13031896 (Version 1)
Quarter: 2016Q4

REPORT INFORMATION
  Report Type: Spontaneous
  Country: FR (occurrence: FR)
  Receive Date: 20161215
  Receipt Date: 20161215
  Transmission Date: 20170207
  Serious: Yes (Life-Threatening, Hospitalization, Other)
  Sender: FDA-Public Use
  Company Number: FR-TEVA-719754ISR

PATIENT
  Age: 66 Year
  Sex: Male

DRUGS (11)
  1. VOLTARENE [Suspect]
     Active Substance: DICLOFENAC SODIUM
     Indication: SCIATIC NERVE INJURY
     Route: 048
     Dates: start: 20161031, end: 20161031
  2. LERCAPRESS [Suspect]
     Active Substance: ENALAPRIL MALEATE\LERCANIDIPINE HYDROCHLORIDE
     Indication: ACUTE CORONARY SYNDROME
     Dosage: 1 DOSAGE FORMS DAILY; 20/10 MG
     Route: 048
     Dates: start: 201610, end: 20161101
  3. DIAMICRON [Suspect]
     Active Substance: GLICLAZIDE
     Indication: TYPE 2 DIABETES MELLITUS
     Dosage: 2 DOSAGE FORMS DAILY; MODIFIED-RELEASE TABLET
     Route: 048
     Dates: end: 20161101
  4. VICTOZA [Suspect]
     Active Substance: LIRAGLUTIDE
     Indication: TYPE 2 DIABETES MELLITUS
     Dosage: 6 MILLIGRAM/MILLILITERS DAILY;
     Route: 058
     Dates: end: 20161101
  5. KARDEGIC [Concomitant]
     Active Substance: ASPIRIN LYSINE
  6. CLOPIDOGREL BESILATE [Concomitant]
     Active Substance: CLOPIDOGREL BESILATE
  7. METFORMIN [Suspect]
     Active Substance: METFORMIN HYDROCHLORIDE
     Indication: TYPE 2 DIABETES MELLITUS
     Dosage: 1 GRAM DAILY;
     Route: 048
     Dates: end: 20161101
  8. CRESTOR [Suspect]
     Active Substance: ROSUVASTATIN CALCIUM
     Indication: ACUTE CORONARY SYNDROME
     Dosage: 1 DOSAGE FORMS DAILY;
     Route: 048
     Dates: end: 20161101
  9. EUCREAS [Suspect]
     Active Substance: METFORMIN HYDROCHLORIDE\VILDAGLIPTIN
     Indication: TYPE 2 DIABETES MELLITUS
     Dosage: 2 DOSAGE FORMS DAILY; 1000/50 MG
     Route: 048
     Dates: end: 20161101
  10. METOPROLOL TARTRATE. [Concomitant]
     Active Substance: METOPROLOL TARTRATE
  11. RABEPRAZOLE SODIUM. [Concomitant]
     Active Substance: RABEPRAZOLE SODIUM

REACTIONS (2)
  - Acute kidney injury [Recovered/Resolved]
  - Lactic acidosis [Recovered/Resolved]

NARRATIVE: CASE EVENT DATE: 20161101
